FAERS Safety Report 12194152 (Version 2)
Quarter: 2017Q3

REPORT INFORMATION
  Report Type: Spontaneous
  Country: US (occurrence: US)
  Receive Date: 20160321
  Receipt Date: 20170703
  Transmission Date: 20171127
  Serious: Yes (Life-Threatening, Hospitalization)
  Sender: FDA-Public Use
  Company Number: US-AUROBINDO-AUR-APL-2016-03350

PATIENT
  Age: 8 Year
  Sex: Female

DRUGS (7)
  1. BUPIVACAINE HYDROCHLORIDE INJECTION USP 0.25% (2.5 MG/ML) [Suspect]
     Active Substance: BUPIVACAINE HYDROCHLORIDE
     Indication: ANAESTHESIA
     Dosage: 1 ML, UNK
     Route: 065
  2. SEVOFLURANE. [Concomitant]
     Active Substance: SEVOFLURANE
     Indication: ANAESTHESIA
     Route: 007
  3. DESFLURANE. [Concomitant]
     Active Substance: DESFLURANE
     Indication: ANAESTHESIA
     Route: 007
  4. FENTANYL. [Suspect]
     Active Substance: FENTANYL
     Indication: PRODUCT USED FOR UNKNOWN INDICATION
     Dosage: 50 ?G, UNK
     Route: 065
  5. DESFLURANE. [Concomitant]
     Active Substance: DESFLURANE
     Indication: GENERAL ANAESTHESIA
     Route: 007
  6. EPINEPHRINE. [Suspect]
     Active Substance: EPINEPHRINE
     Indication: PRODUCT USED FOR UNKNOWN INDICATION
     Route: 065
  7. SEVOFLURANE. [Concomitant]
     Active Substance: SEVOFLURANE
     Indication: GENERAL ANAESTHESIA
     Route: 007

REACTIONS (2)
  - Cardiac arrest [Recovered/Resolved]
  - Incorrect route of drug administration [Recovered/Resolved]
